FAERS Safety Report 8478737-7 (Version None)
Quarter: 2012Q2

REPORT INFORMATION
  Report Type: 
  Country: None (occurrence: None)
  Receive Date: 20120629
  Receipt Date: 20120620
  Transmission Date: 20120825
  Serious: No
  Sender: FDA-Public Use
  Company Number: US-JNJFOC-20120611110

PATIENT
  Sex: Female
  Weight: 72.58 kg

DRUGS (3)
  1. FENTANYL-100 [Suspect]
     Indication: MYOFASCIAL PAIN SYNDROME
     Dosage: NDC# 0781-7242-55
     Route: 062
     Dates: start: 20110301
  2. FENTANYL-100 [Suspect]
     Indication: MULTIPLE SCLEROSIS
     Dosage: NDC# 0781-7242-55
     Route: 062
     Dates: start: 20110301
  3. FENTANYL-100 [Suspect]
     Indication: FIBROMYALGIA
     Dosage: NDC# 0781-7242-55
     Route: 062
     Dates: start: 20110301

REACTIONS (2)
  - WRONG TECHNIQUE IN DRUG USAGE PROCESS [None]
  - PRODUCT ADHESION ISSUE [None]
